FAERS Safety Report 10458891 (Version 1)
Quarter: 2014Q3

REPORT INFORMATION
  Report Type: Spontaneous
  Country: US (occurrence: None)
  Receive Date: 20140915
  Receipt Date: 20140915
  Transmission Date: 20150326
  Serious: Yes (Death)
  Sender: FDA-Public Use
  Company Number: 2014US003658

PATIENT
  Age: 66 Year
  Sex: Male

DRUGS (10)
  1. PROCHLORPERAZINE (PROCHLORPERAZINE MALEATE) [Concomitant]
  2. MAGNESIUM (MAGNESIUM HYDROXIDE) [Concomitant]
  3. METOPROLOL (METOPROLOL TARTRATE) [Concomitant]
     Active Substance: METOPROLOL TARTRATE
  4. VALACYCLOVIR HYDROCHLORIDE. [Concomitant]
     Active Substance: VALACYCLOVIR HYDROCHLORIDE
  5. PREDNISONE (PREDNISONE ACETATE) [Concomitant]
  6. ICLUSIG [Suspect]
     Active Substance: PONATINIB
     Indication: MYELODYSPLASTIC SYNDROME
     Route: 048
  7. NOXAFIL [Concomitant]
     Active Substance: POSACONAZOLE
  8. PRILOSEC (OMEPRAZOLE) [Concomitant]
     Active Substance: OMEPRAZOLE MAGNESIUM
  9. OXYCODONE [Concomitant]
     Active Substance: OXYCODONE
  10. TACROLIMUS. [Concomitant]
     Active Substance: TACROLIMUS

REACTIONS (1)
  - Off label use [None]

NARRATIVE: CASE EVENT DATE: 20140828
